FAERS Safety Report 5142930-1 (Version None)
Quarter: 2006Q4

REPORT INFORMATION
  Report Type: 
  Country: None (occurrence: None)
  Receive Date: 20061030
  Receipt Date: 20061018
  Transmission Date: 20070319
  Serious: Yes (Hospitalization)
  Sender: FDA-Public Use
  Company Number: 2006129718

PATIENT
  Age: 47 Year
  Sex: Male

DRUGS (3)
  1. LIPITOR [Suspect]
     Indication: HYPERCHOLESTEROLAEMIA
     Dosage: 5 MG (1 IN 1 D), ORAL
     Route: 048
     Dates: start: 20050801, end: 20061012
  2. URINORM (BENZBROMARONE) [Concomitant]
  3. EPADEL (ETHINYL ICOSAPENTATE) [Concomitant]

REACTIONS (3)
  - DIALYSIS [None]
  - HEPATITIS [None]
  - RENAL FAILURE ACUTE [None]
